FAERS Safety Report 5008472-9 (Version None)
Quarter: 2006Q2

REPORT INFORMATION
  Report Type: 
  Country: None (occurrence: None)
  Receive Date: 20060522
  Receipt Date: 20060522
  Transmission Date: 20061013
  Serious: Yes (Life-Threatening, Hospitalization)
  Sender: FDA-Public Use
  Company Number: None

PATIENT
  Age: 33 Year
  Sex: Female
  Weight: 43.5453 kg

DRUGS (2)
  1. PAXIL [Suspect]
     Indication: ANXIETY
     Dosage: 20-80MGS   ONCE DAILY   PO
     Route: 048
     Dates: start: 19980701, end: 20000531
  2. PAXIL [Suspect]
     Indication: DEPRESSION
     Dosage: 20-80MGS   ONCE DAILY   PO
     Route: 048
     Dates: start: 19980701, end: 20000531

REACTIONS (4)
  - AGITATION [None]
  - CONDITION AGGRAVATED [None]
  - DEPRESSION [None]
  - SUICIDE ATTEMPT [None]
